FAERS Safety Report 18270376 (Version 1)
Quarter: 2020Q3

REPORT INFORMATION
  Report Type: Spontaneous
  Country: US (occurrence: US)
  Receive Date: 20200916
  Receipt Date: 20200916
  Transmission Date: 20201103
  Serious: Yes (Other)
  Sender: FDA-Public Use
  Company Number: US-PACIRA-202000401

PATIENT
  Age: 18 Year
  Sex: Female

DRUGS (1)
  1. EXPAREL [Suspect]
     Active Substance: BUPIVACAINE
     Indication: BUNION OPERATION
     Dosage: NOT PROVIDED
     Route: 065

REACTIONS (2)
  - Amputation [Unknown]
  - Peripheral ischaemia [Unknown]
